FAERS Safety Report 7285198-2 (Version None)
Quarter: 2011Q1

REPORT INFORMATION
  Report Type: 
  Country: None (occurrence: None)
  Receive Date: 20110204
  Receipt Date: 20110204
  Transmission Date: 20110831
  Serious: Yes (Hospitalization)
  Sender: FDA-Public Use
  Company Number: None

PATIENT
  Sex: Female
  Weight: 47.3 kg

DRUGS (6)
  1. TEMAZEPAM [Concomitant]
  2. CIPRO HC [Concomitant]
  3. PROTONIX [Concomitant]
  4. TARCEVA [Suspect]
     Indication: METASTASES TO CENTRAL NERVOUS SYSTEM
     Dosage: 150 MG Q DAY PO
     Route: 048
     Dates: start: 20090924, end: 20110130
  5. TARCEVA [Suspect]
     Indication: NON-SMALL CELL LUNG CANCER
     Dosage: 150 MG Q DAY PO
     Route: 048
     Dates: start: 20090924, end: 20110130
  6. LISINOPRIL [Concomitant]

REACTIONS (6)
  - WALLENBERG SYNDROME [None]
  - CEREBROVASCULAR ACCIDENT [None]
  - HYPERTENSION [None]
  - HEMIPARESIS [None]
  - OTITIS EXTERNA [None]
  - FEELING ABNORMAL [None]
